FAERS Safety Report 11436643 (Version 1)
Quarter: 2015Q3

REPORT INFORMATION
  Report Type: Spontaneous
  Country: US (occurrence: US)
  Receive Date: 20150821
  Receipt Date: 20150821
  Transmission Date: 20151125
  Serious: No
  Sender: FDA-Public Use
  Company Number: US-ELI_LILLY_AND_COMPANY-US201304005432

PATIENT
  Sex: Male

DRUGS (3)
  1. CIALIS [Suspect]
     Active Substance: TADALAFIL
     Indication: BENIGN PROSTATIC HYPERPLASIA
     Dosage: 5 MG, UNK
  2. CIALIS [Suspect]
     Active Substance: TADALAFIL
     Dosage: 5 MG, UNKNOWN
     Dates: start: 20140611
  3. CIALIS [Suspect]
     Active Substance: TADALAFIL
     Dosage: 2.5 MG, UNK

REACTIONS (2)
  - Wrong technique in product usage process [Unknown]
  - Epistaxis [Recovered/Resolved]
